FAERS Safety Report 6617014-3 (Version None)
Quarter: 2010Q1

REPORT INFORMATION
  Report Type: 
  Country: None (occurrence: None)
  Receive Date: 20100302
  Receipt Date: 20100219
  Transmission Date: 20100710
  Serious: Yes (Hospitalization)
  Sender: FDA-Public Use
  Company Number: MSTR-NO-0907S-0142

PATIENT
  Age: 64 Year
  Sex: Male

DRUGS (1)
  1. METASTRON [Suspect]
     Indication: METASTATIC PAIN
     Dosage: 3.8 ML, SINGLE DOSE, I.V.
     Dates: start: 20081029, end: 20081029

REACTIONS (8)
  - ANAEMIA [None]
  - BACK PAIN [None]
  - GASTROINTESTINAL PERFORATION [None]
  - MALIGNANT NEOPLASM PROGRESSION [None]
  - PERINEAL PAIN [None]
  - PROSTATE CANCER [None]
  - PUBIC PAIN [None]
  - PYREXIA [None]
